FAERS Safety Report 8050824-7 (Version None)
Quarter: 2012Q1

REPORT INFORMATION
  Report Type: 
  Country: None (occurrence: None)
  Receive Date: 20120117
  Receipt Date: 20120110
  Transmission Date: 20120608
  Serious: Yes (Other)
  Sender: FDA-Public Use
  Company Number: US-BAYER-2012-003377

PATIENT
  Sex: Female

DRUGS (6)
  1. CITRACAL [Concomitant]
     Dosage: 4 DF, QD
     Route: 048
  2. SYNTHROID [Concomitant]
  3. ONE A DAY WOMEN'S 50+ ADVANTAGE [Suspect]
     Dosage: 1 DF, QD, BOTTLE COUNT 150S
     Route: 048
  4. ALENDRONATE SODIUM [Concomitant]
  5. CARVEDILOL [Concomitant]
  6. SIMVASTATIN [Concomitant]

REACTIONS (2)
  - FOREIGN BODY [None]
  - CHOKING [None]
